FAERS Safety Report 7436355-3 (Version None)
Quarter: 2011Q2

REPORT INFORMATION
  Report Type: 
  Country: None (occurrence: None)
  Receive Date: 20110426
  Receipt Date: 20110418
  Transmission Date: 20111010
  Serious: No
  Sender: FDA-Public Use
  Company Number: US-BIOGENIDEC-2010BI039898

PATIENT
  Sex: Male

DRUGS (1)
  1. TYSABRI [Suspect]
     Indication: MULTIPLE SCLEROSIS
     Route: 042
     Dates: start: 20100625

REACTIONS (11)
  - MEMORY IMPAIRMENT [None]
  - HEADACHE [None]
  - MULTIPLE SCLEROSIS RELAPSE [None]
  - SPEECH DISORDER [None]
  - CHILLS [None]
  - ASTHENIA [None]
  - HYPOAESTHESIA [None]
  - GAIT DISTURBANCE [None]
  - VOMITING [None]
  - DECREASED APPETITE [None]
  - EROSIVE OESOPHAGITIS [None]
